FAERS Safety Report 9974272 (Version 1)
Quarter: 2014Q1

REPORT INFORMATION
  Report Type: Report from Study
  Country: US (occurrence: US)
  Receive Date: 20140306
  Receipt Date: 20140306
  Transmission Date: 20141002
  Serious: No
  Sender: FDA-Public Use
  Company Number: US-ABBVIE-13P-163-1158869-00

PATIENT
  Age: 34 Year
  Sex: Female
  Weight: 81.72 kg

DRUGS (3)
  1. HUMIRA [Suspect]
     Indication: PSORIASIS
     Dates: start: 20131001, end: 20131001
  2. HUMIRA [Suspect]
     Dates: start: 20131008, end: 20131008
  3. CELEXA [Concomitant]
     Indication: DEPRESSION

REACTIONS (1)
  - Incorrect dose administered [Not Recovered/Not Resolved]
